FAERS Safety Report 8218662-X (Version None)
Quarter: 2012Q1

REPORT INFORMATION
  Report Type: 
  Country: None (occurrence: None)
  Receive Date: 20120306
  Receipt Date: 20111012
  Transmission Date: 20120608
  Serious: Yes (Hospitalization)
  Sender: FDA-Public Use
  Company Number: US-006849

PATIENT
  Age: 49 Year
  Sex: Female

DRUGS (7)
  1. AMLODIPINE BESYLATE AND BENAZEPRIL HCL [Concomitant]
  2. XANAX [Concomitant]
  3. METAXALONE [Concomitant]
  4. ISOVUE-370 [Suspect]
     Indication: CHEST X-RAY ABNORMAL
     Dosage: 75ML ONCE INTRAVENOUS (NOT OTHERWISE SPECIFIED)
     Route: 042
     Dates: start: 20110907, end: 20110907
  5. ISOVUE-370 [Suspect]
     Indication: COMPUTERISED TOMOGRAM
     Dosage: 75ML ONCE INTRAVENOUS (NOT OTHERWISE SPECIFIED)
     Route: 042
     Dates: start: 20110907, end: 20110907
  6. LOPERAMIDE [Concomitant]
  7. NAPROXEN [Concomitant]

REACTIONS (6)
  - ANGIOEDEMA [None]
  - IRRITABILITY [None]
  - OXYGEN SATURATION DECREASED [None]
  - PHARYNGEAL OEDEMA [None]
  - PULSELESS ELECTRICAL ACTIVITY [None]
  - PRURITUS [None]
